FAERS Safety Report 9181222 (Version 2)
Quarter: 2013Q1

REPORT INFORMATION
  Report Type: Spontaneous
  Country: US (occurrence: US)
  Receive Date: 20130322
  Receipt Date: 20130322
  Transmission Date: 20140127
  Serious: Yes (Hospitalization)
  Sender: FDA-Public Use
  Company Number: US-MYLANLABS-2012S1020519

PATIENT
  Age: 62 Year
  Sex: Female

DRUGS (10)
  1. EMSAM [Suspect]
     Indication: POST-TRAUMATIC STRESS DISORDER
     Route: 062
     Dates: start: 20100727, end: 20120815
  2. EMSAM [Suspect]
     Indication: MAJOR DEPRESSION
     Route: 062
     Dates: start: 20100727, end: 20120815
  3. FLUOXETINE [Concomitant]
     Indication: POST-TRAUMATIC STRESS DISORDER
  4. CLONAZEPAM [Concomitant]
     Dosage: ODT
  5. ONDANSETRON [Concomitant]
  6. PROTONIX [Concomitant]
     Dates: start: 20120928
  7. BENADRYL [Concomitant]
     Indication: INSOMNIA
     Route: 042
     Dates: start: 20120928
  8. CARDIZEM [Concomitant]
     Dates: start: 20120928
  9. ROZEREM [Concomitant]
     Dates: end: 2012
  10. CALCIUM WITH VITAMIN D [Concomitant]

REACTIONS (8)
  - Blood pressure increased [Not Recovered/Not Resolved]
  - Headache [Not Recovered/Not Resolved]
  - Chills [Not Recovered/Not Resolved]
  - Hyperhidrosis [Not Recovered/Not Resolved]
  - Tremor [Not Recovered/Not Resolved]
  - Pain [Not Recovered/Not Resolved]
  - Dehydration [Not Recovered/Not Resolved]
  - Dyspnoea [Not Recovered/Not Resolved]
